FAERS Safety Report 7677945-2 (Version None)
Quarter: 2011Q3

REPORT INFORMATION
  Report Type: 
  Country: None (occurrence: None)
  Receive Date: 20110811
  Receipt Date: 20110802
  Transmission Date: 20111222
  Serious: Yes (Death, Hospitalization)
  Sender: FDA-Public Use
  Company Number: US-ACTELION-A-NJ2011-52050

PATIENT

DRUGS (6)
  1. EPOPROSTENOL SODIUM [Suspect]
     Indication: PULMONARY ARTERIAL HYPERTENSION
     Dosage: 9 NG/KG, PER MIN
     Route: 041
     Dates: start: 20110101, end: 20110804
  2. EPOPROSTENOL SODIUM [Suspect]
     Dosage: 8.5 NG/KG, PER MIN
     Route: 041
     Dates: start: 20110531, end: 20110101
  3. LASIX [Concomitant]
  4. TRACLEER [Suspect]
     Indication: PULMONARY ARTERIAL HYPERTENSION
     Dosage: UNK
     Route: 048
     Dates: start: 20080104
  5. COUMADIN [Concomitant]
  6. VENTAVIS [Concomitant]
     Indication: PULMONARY ARTERIAL HYPERTENSION
     Dosage: UNK
     Route: 055
     Dates: start: 20080131, end: 20110628

REACTIONS (9)
  - ABDOMINAL PAIN [None]
  - DYSPNOEA [None]
  - CONDITION AGGRAVATED [None]
  - CHEST PAIN [None]
  - THROMBOSIS [None]
  - PULMONARY ARTERIAL HYPERTENSION [None]
  - CARDIAC FAILURE [None]
  - PULMONARY OEDEMA [None]
  - TACHYCARDIA [None]
